FAERS Safety Report 10566205 (Version 2)
Quarter: 2014Q4

REPORT INFORMATION
  Report Type: Report from Study
  Country: US (occurrence: US)
  Receive Date: 20141105
  Receipt Date: 20141105
  Transmission Date: 20150529
  Serious: Yes (Hospitalization)
  Sender: FDA-Public Use
  Company Number: US-SA-2014SA051236

PATIENT
  Age: 52 Year
  Sex: Male

DRUGS (3)
  1. AUBAGIO [Suspect]
     Active Substance: TERIFLUNOMIDE
     Indication: MULTIPLE SCLEROSIS
     Route: 048
     Dates: start: 201301, end: 201409
  2. CLONAZEPAM. [Concomitant]
     Active Substance: CLONAZEPAM
  3. NUEDEXTA [Concomitant]
     Active Substance: DEXTROMETHORPHAN HYDROBROMIDE\QUINIDINE SULFATE

REACTIONS (3)
  - Urinary tract infection [Unknown]
  - Sepsis [Unknown]
  - Gait disturbance [Unknown]
